FAERS Safety Report 9242082 (Version 1)
Quarter: 2013Q2

REPORT INFORMATION
  Report Type: Spontaneous
  Country: US (occurrence: US)
  Receive Date: 20130419
  Receipt Date: 20130419
  Transmission Date: 20140414
  Serious: No
  Sender: FDA-Public Use
  Company Number: US-B.I. PHARMACEUTICALS,INC./RIDGEFIELD-2013-BI-09795BP

PATIENT
  Age: 45 Year
  Sex: Male
  Weight: 71 kg

DRUGS (3)
  1. ZANTAC (RANITIDINE HYDROCHLORIDE) [Suspect]
     Indication: DYSPEPSIA
     Dosage: 300 MG
     Route: 048
     Dates: start: 20130330, end: 20130408
  2. TUMS [Concomitant]
  3. PRILOSEC [Concomitant]

REACTIONS (1)
  - Dyspepsia [Not Recovered/Not Resolved]
